FAERS Safety Report 16886997 (Version 2)
Quarter: 2019Q4

REPORT INFORMATION
  Report Type: Spontaneous
  Country: AT (occurrence: AT)
  Receive Date: 20191004
  Receipt Date: 20191107
  Transmission Date: 20200122
  Serious: No
  Sender: FDA-Public Use
  Company Number: AT-AMGEN-AUTSP2019147496

PATIENT
  Sex: Female

DRUGS (5)
  1. NPLATE [Suspect]
     Active Substance: ROMIPLOSTIM
     Indication: PRODUCT USED FOR UNKNOWN INDICATION
     Dosage: 250 MICROGRAM, QWK
     Route: 065
     Dates: start: 201903
  2. CYCLOSPORIN [Concomitant]
     Active Substance: CYCLOSPORINE
     Indication: ANAEMIA
     Dosage: 100 MILLIGRAM, BID
  3. NPLATE [Suspect]
     Active Substance: ROMIPLOSTIM
     Dosage: 500 MICROGRAM, QWK
     Route: 065
  4. NPLATE [Suspect]
     Active Substance: ROMIPLOSTIM
     Dosage: UNK, QWK
     Route: 065
  5. VITAMIN B [Concomitant]
     Active Substance: VITAMIN B

REACTIONS (10)
  - Nausea [Recovered/Resolved]
  - Petechiae [Unknown]
  - Therapeutic product effect incomplete [Unknown]
  - Red blood cell count decreased [Unknown]
  - Decreased appetite [Not Recovered/Not Resolved]
  - Platelet count decreased [Unknown]
  - Malaise [Unknown]
  - Weight decreased [Unknown]
  - Restless legs syndrome [Unknown]
  - Vomiting [Unknown]

NARRATIVE: CASE EVENT DATE: 2019
